FAERS Safety Report 11727999 (Version 1)
Quarter: 2015Q4

REPORT INFORMATION
  Report Type: Spontaneous
  Country: US (occurrence: US)
  Receive Date: 20151110
  Receipt Date: 20151110
  Transmission Date: 20160304
  Serious: No
  Sender: FDA-Public Use
  Company Number: US-ELI_LILLY_AND_COMPANY-US201111002627

PATIENT
  Age: 56 Year
  Sex: Female

DRUGS (1)
  1. FORTEO [Suspect]
     Active Substance: TERIPARATIDE
     Indication: OSTEOPOROSIS
     Dosage: 20 UG, QD
     Dates: start: 20111026, end: 20111116

REACTIONS (16)
  - Urge incontinence [Unknown]
  - Head discomfort [Unknown]
  - Hypoacusis [Unknown]
  - Headache [Recovering/Resolving]
  - Hyperhidrosis [Unknown]
  - Insomnia [Unknown]
  - Hot flush [Unknown]
  - Drug dose omission [Recovered/Resolved]
  - Injection site erythema [Unknown]
  - Headache [Unknown]
  - Asthenia [Unknown]
  - Injection site pain [Recovered/Resolved]
  - Dizziness [Recovered/Resolved]
  - Injection site reaction [Unknown]
  - Gait disturbance [Unknown]
  - Urine abnormality [Unknown]

NARRATIVE: CASE EVENT DATE: 20111026
